FAERS Safety Report 4961727-6 (Version None)
Quarter: 2006Q1

REPORT INFORMATION
  Report Type: 
  Country: None (occurrence: None)
  Receive Date: 20060329
  Receipt Date: 20060314
  Transmission Date: 20060701
  Serious: Yes (Other)
  Sender: FDA-Public Use
  Company Number: 109524ISR

PATIENT
  Sex: Male

DRUGS (1)
  1. GLATIRAMER ACETATE [Suspect]
     Dosage: 20 MILLIGRAM, SUBCUTANEOUS
     Route: 058

REACTIONS (1)
  - AUTOIMMUNE HEPATITIS [None]
